FAERS Safety Report 9338478 (Version 1)
Quarter: 2013Q2

REPORT INFORMATION
  Report Type: Spontaneous
  Country: US (occurrence: US)
  Receive Date: 20130610
  Receipt Date: 20130610
  Transmission Date: 20140414
  Serious: Yes (Other)
  Sender: FDA-Public Use
  Company Number: US-JNJFOC-20130522205

PATIENT
  Sex: Male
  Weight: 68.04 kg

DRUGS (1)
  1. INVEGA [Suspect]
     Indication: SCHIZOAFFECTIVE DISORDER
     Dosage: 3-9 MG
     Route: 048

REACTIONS (4)
  - Tardive dyskinesia [Unknown]
  - Weight increased [Recovering/Resolving]
  - Tobacco user [Unknown]
  - Akathisia [Unknown]
